FAERS Safety Report 9171215 (Version 5)
Quarter: 2014Q1

REPORT INFORMATION
  Report Type: Spontaneous
  Country: US (occurrence: US)
  Receive Date: 20130319
  Receipt Date: 20140227
  Transmission Date: 20141002
  Serious: Yes (Hospitalization, Disabling, Other)
  Sender: FDA-Public Use
  Company Number: US-MERCK-1303USA007551

PATIENT
  Sex: Female
  Weight: 68.93 kg

DRUGS (3)
  1. FOSAMAX [Suspect]
     Indication: OSTEOPOROSIS
     Dosage: 70 MG, QW
     Route: 048
     Dates: end: 2012
  2. ONE-A-DAY ESSENTIAL VITAMINS [Concomitant]
     Dosage: 1 DF, QD
     Dates: start: 1993
  3. HORMONES (UNSPECIFIED) [Concomitant]
     Dosage: UNK
     Dates: start: 1990

REACTIONS (37)
  - Femur fracture [Unknown]
  - Intramedullary rod insertion [Unknown]
  - Disability [Not Recovered/Not Resolved]
  - Cholecystectomy [Unknown]
  - Pancreatitis acute [Unknown]
  - Biliary sphincterotomy [Unknown]
  - Cholelithiasis [Unknown]
  - Low turnover osteopathy [Unknown]
  - Depression [Recovered/Resolved]
  - Anxiety [Recovered/Resolved]
  - Stress fracture [Unknown]
  - Osteoporosis [Unknown]
  - Mitral valve prolapse [Unknown]
  - Urinary tract infection [Unknown]
  - Impaired healing [Unknown]
  - Osteitis deformans [Unknown]
  - Arrhythmia [Unknown]
  - Tonsillectomy [Unknown]
  - Carpal tunnel decompression [Unknown]
  - Adenoidectomy [Unknown]
  - Anxiety [Unknown]
  - Depression [Unknown]
  - Iliotibial band syndrome [Unknown]
  - Hypertension [Unknown]
  - Intervertebral disc degeneration [Unknown]
  - Lumbar radiculopathy [Unknown]
  - Restless legs syndrome [Unknown]
  - Leukocytosis [Unknown]
  - Hypokalaemia [Unknown]
  - Osteoarthritis [Unknown]
  - Appendicectomy [Unknown]
  - Pain [Not Recovered/Not Resolved]
  - Hypercholesterolaemia [Unknown]
  - Chest pain [Unknown]
  - Asthenia [Unknown]
  - Muscle spasms [Unknown]
  - Arthralgia [Unknown]
